FAERS Safety Report 10025461 (Version 1)
Quarter: 2014Q1

REPORT INFORMATION
  Report Type: Spontaneous
  Country: US (occurrence: None)
  Receive Date: 20140314
  Receipt Date: 20140314
  Transmission Date: 20141002
  Serious: Yes (Other)
  Sender: FDA-Public Use
  Company Number: 7274719

PATIENT
  Age: 34 Year
  Sex: Female
  Weight: 85 kg

DRUGS (8)
  1. METFORMIN [Suspect]
     Indication: INSULIN RESISTANCE
  2. LEVOTHYROXINE [Suspect]
     Indication: HYPOTHYROIDISM
  3. LEVOTHYROXINE [Suspect]
     Indication: RAYNAUD^S PHENOMENON
  4. PREDNISONE [Suspect]
     Route: 048
  5. HEPARIN [Suspect]
     Route: 058
  6. ASPIRIN [Suspect]
     Route: 048
  7. CALCIUM [Suspect]
     Indication: MINERAL SUPPLEMENTATION
     Route: 048
  8. IMMUNOGLOBULIN [Suspect]
     Dosage: EVERY 3-4 WEEKS, INTRAVENOUS (NOT OTHERWISE SPECIFIED)
     Route: 042

REACTIONS (4)
  - Antiphospholipid antibodies positive [None]
  - B-lymphocyte abnormalities [None]
  - Abortion spontaneous [None]
  - Maternal exposure during pregnancy [None]
